FAERS Safety Report 15160251 (Version 2)
Quarter: 2018Q3

REPORT INFORMATION
  Report Type: Spontaneous
  Country: US (occurrence: US)
  Receive Date: 20180718
  Receipt Date: 20180904
  Transmission Date: 20181010
  Serious: No
  Sender: FDA-Public Use
  Company Number: US-ASTRAZENECA-2018SE84111

PATIENT
  Sex: Male
  Weight: 131.5 kg

DRUGS (1)
  1. BYDUREON BCISE [Suspect]
     Active Substance: EXENATIDE
     Indication: GLYCOSYLATED HAEMOGLOBIN INCREASED
     Dosage: ONCE A WEEK
     Route: 065
     Dates: start: 20180624

REACTIONS (3)
  - Needle issue [Unknown]
  - Drug dose omission [Unknown]
  - Injection site haemorrhage [Unknown]
